FAERS Safety Report 9550983 (Version 1)
Quarter: 2013Q3

REPORT INFORMATION
  Report Type: Spontaneous
  Country: US (occurrence: US)
  Receive Date: 20130924
  Receipt Date: 20130924
  Transmission Date: 20140515
  Serious: No
  Sender: FDA-Public Use
  Company Number: US-SANOFI-AVENTIS-2013SA051125

PATIENT
  Age: 68 Year
  Sex: Female
  Weight: 72.57 kg

DRUGS (9)
  1. AUBAGIO [Suspect]
     Indication: MULTIPLE SCLEROSIS
     Route: 048
     Dates: start: 20130502, end: 20130514
  2. PLAQUENIL [Concomitant]
     Indication: SYSTEMIC LUPUS ERYTHEMATOSUS
  3. VALIUM [Concomitant]
  4. AMLODIPINE BESILATE [Concomitant]
  5. PRILOSEC [Concomitant]
  6. LEVOXYL [Concomitant]
  7. HYDROCODONE [Concomitant]
  8. CYTOTEC [Concomitant]
  9. CARAFATE [Concomitant]

REACTIONS (9)
  - Red blood cell count decreased [Not Recovered/Not Resolved]
  - Fungal infection [Not Recovered/Not Resolved]
  - Feeling abnormal [Not Recovered/Not Resolved]
  - Gait disturbance [Not Recovered/Not Resolved]
  - Abdominal pain upper [Not Recovered/Not Resolved]
  - Influenza like illness [Not Recovered/Not Resolved]
  - White blood cell count decreased [Not Recovered/Not Resolved]
  - Drug ineffective for unapproved indication [Unknown]
  - Systemic lupus erythematosus [Unknown]
